FAERS Safety Report 20613998 (Version 4)
Quarter: 2022Q4

REPORT INFORMATION
  Report Type: Report from Study
  Country: AU (occurrence: AU)
  Receive Date: 20220319
  Receipt Date: 20221228
  Transmission Date: 20230113
  Serious: Yes (Other)
  Sender: FDA-Public Use
  Company Number: AU-NOVARTISPH-NVSC2022AU061950

PATIENT
  Age: 20 Year
  Sex: Male

DRUGS (5)
  1. TISAGENLECLEUCEL [Suspect]
     Active Substance: TISAGENLECLEUCEL
     Indication: Acute lymphocytic leukaemia
     Dosage: UNK UNK, ONCE/SINGLE (1.2 E8)
     Route: 042
     Dates: start: 20210119
  2. TISAGENLECLEUCEL [Suspect]
     Active Substance: TISAGENLECLEUCEL
     Dosage: UNK (ONCE/SINGLE PRODUCT REQUEST WEIGHT: 100.1)(1.2E8 CAR-POSITIVE VIABLE T-CELL)
     Route: 042
     Dates: start: 20221129
  3. VINCRISTINE [Concomitant]
     Active Substance: VINCRISTINE
     Indication: Product used for unknown indication
     Dosage: UNK
     Route: 065
  4. VENETOCLAX [Concomitant]
     Active Substance: VENETOCLAX
     Indication: Product used for unknown indication
     Dosage: UNK
     Route: 065
  5. NAVITOCLAX [Concomitant]
     Active Substance: NAVITOCLAX
     Indication: Product used for unknown indication
     Dosage: UNK
     Route: 065

REACTIONS (6)
  - Acute lymphocytic leukaemia recurrent [Unknown]
  - Cytopenia [Unknown]
  - Pneumonia [Unknown]
  - Adenovirus infection [Unknown]
  - Therapy non-responder [Unknown]
  - Out of specification test results [Unknown]

NARRATIVE: CASE EVENT DATE: 20221129
